FAERS Safety Report 12980701 (Version 5)
Quarter: 2017Q1

REPORT INFORMATION
  Report Type: Spontaneous
  Country: US (occurrence: US)
  Receive Date: 20161128
  Receipt Date: 20170304
  Transmission Date: 20170428
  Serious: No
  Sender: FDA-Public Use
  Company Number: US-LUNDBECK-DKLU2022935

PATIENT
  Age: 87 Year
  Sex: Female

DRUGS (3)
  1. NORTHERA [Suspect]
     Active Substance: DROXIDOPA
     Indication: PRODUCT USED FOR UNKNOWN INDICATION
     Dosage: SCHEDULE B (TITRATION COMPLETE)
     Route: 065
     Dates: start: 20161031
  2. NORTHERA [Suspect]
     Active Substance: DROXIDOPA
     Route: 065
  3. NORTHERA [Suspect]
     Active Substance: DROXIDOPA
     Route: 065
     Dates: start: 201611

REACTIONS (15)
  - Dysphagia [Unknown]
  - Dizziness [Recovering/Resolving]
  - Hypertension [Recovering/Resolving]
  - Musculoskeletal stiffness [Unknown]
  - Nausea [Recovering/Resolving]
  - Insomnia [Unknown]
  - Condition aggravated [Unknown]
  - Myalgia [Unknown]
  - Muscle spasms [Unknown]
  - Tremor [Unknown]
  - Drooling [Unknown]
  - Fatigue [Recovering/Resolving]
  - Hypotension [Recovering/Resolving]
  - Depression [Unknown]
  - Constipation [Unknown]

NARRATIVE: CASE EVENT DATE: 201701
